FAERS Safety Report 7605052-3 (Version None)
Quarter: 2011Q3

REPORT INFORMATION
  Report Type: 
  Country: None (occurrence: None)
  Receive Date: 20110713
  Receipt Date: 20080724
  Transmission Date: 20111222
  Serious: Yes (Other)
  Sender: FDA-Public Use
  Company Number: US-BAYER-200717187NA

PATIENT
  Age: 49 Year
  Sex: Male
  Weight: 102.49 kg

DRUGS (17)
  1. MAGNEVIST [Suspect]
     Indication: NUCLEAR MAGNETIC RESONANCE IMAGING ABDOMINAL
     Dates: start: 20060215, end: 20060215
  2. OXYCONTIN [Concomitant]
  3. MAGNEVIST [Suspect]
     Dates: start: 20060809, end: 20060809
  4. MAGNEVIST [Suspect]
     Dates: start: 20070529, end: 20070529
  5. OXYCODONE HCL AND ACETAMINOPHEN [Concomitant]
  6. GEMFIBROZIL [Concomitant]
  7. COUMADIN [Concomitant]
  8. CELEBREX [Concomitant]
  9. MAGNEVIST [Suspect]
     Indication: NUCLEAR MAGNETIC RESONANCE IMAGING
     Dates: start: 20050502, end: 20050502
  10. MAGNEVIST [Suspect]
     Dosage: 20 ML, ONCE
     Route: 042
     Dates: start: 20020625, end: 20020625
  11. NALTREXONE HYDROCHLORIDE [Concomitant]
  12. FLUOXETINE [Concomitant]
  13. EFFEXOR [Concomitant]
  14. NAPROXEN SODIUM + PSEUDOEPHEDRINE [Concomitant]
  15. BEXTRA [Concomitant]
  16. PHOSLO [Concomitant]
  17. THALIDOMIDE [Concomitant]

REACTIONS (16)
  - NEPHROGENIC SYSTEMIC FIBROSIS [None]
  - MUSCLE TIGHTNESS [None]
  - GAIT DISTURBANCE [None]
  - ARTHRALGIA [None]
  - MUSCULOSKELETAL STIFFNESS [None]
  - JOINT STIFFNESS [None]
  - SKIN SWELLING [None]
  - SKIN DISORDER [None]
  - MOBILITY DECREASED [None]
  - SKIN TIGHTNESS [None]
  - MUSCLE SWELLING [None]
  - POST-TRAUMATIC STRESS DISORDER [None]
  - SUPRAPUBIC PAIN [None]
  - PAIN IN EXTREMITY [None]
  - JOINT SWELLING [None]
  - ANXIETY DISORDER [None]
